FAERS Safety Report 16244718 (Version 1)
Quarter: 2019Q2

REPORT INFORMATION
  Report Type: Spontaneous
  Country: US (occurrence: US)
  Receive Date: 20190426
  Receipt Date: 20190426
  Transmission Date: 20190711
  Serious: Yes (Other)
  Sender: FDA-Public Use
  Company Number: US-PFIZER INC-2019173393

PATIENT
  Age: 74 Year
  Sex: Male

DRUGS (6)
  1. LIDOCAINE HCL [Interacting]
     Active Substance: LIDOCAINE HYDROCHLORIDE
     Indication: VENTRICULAR FIBRILLATION
  2. DIGOXIN. [Interacting]
     Active Substance: DIGOXIN
     Indication: VENTRICULAR TACHYCARDIA
     Dosage: UNK
  3. AMIODARONE HCL [Suspect]
     Active Substance: AMIODARONE HYDROCHLORIDE
     Indication: VENTRICULAR TACHYCARDIA
     Dosage: UNK
     Route: 042
  4. DIGOXIN. [Interacting]
     Active Substance: DIGOXIN
     Indication: VENTRICULAR TACHYCARDIA
  5. AMIODARONE HCL [Interacting]
     Active Substance: AMIODARONE HYDROCHLORIDE
     Indication: VENTRICULAR FIBRILLATION
  6. LIDOCAINE HCL [Interacting]
     Active Substance: LIDOCAINE HYDROCHLORIDE
     Indication: VENTRICULAR TACHYCARDIA
     Dosage: UNK
     Route: 042

REACTIONS (4)
  - Ventricular extrasystoles [Unknown]
  - Toxicity to various agents [Unknown]
  - Ventricular tachycardia [Unknown]
  - Labelled drug-drug interaction medication error [Unknown]
